FAERS Safety Report 22353264 (Version 4)
Quarter: 2024Q2

REPORT INFORMATION
  Report Type: Report from Study
  Country: DE (occurrence: DE)
  Receive Date: 20230523
  Receipt Date: 20240626
  Transmission Date: 20240716
  Serious: Yes (Other)
  Sender: FDA-Public Use
  Company Number: DE-ROCHE-3353593

PATIENT
  Age: 51 Year
  Sex: Female

DRUGS (3)
  1. OCREVUS [Suspect]
     Active Substance: OCRELIZUMAB
     Indication: Relapsing-remitting multiple sclerosis
     Dosage: THE LAST INFUSION WAS ADMINISTERED ON 05/DEC/2022
     Route: 042
     Dates: start: 20210601
  2. ABEMACICLIB [Suspect]
     Active Substance: ABEMACICLIB
     Indication: Breast cancer
     Dosage: STARTED TREATMENT ON 05-JAN-2024
     Route: 065
     Dates: end: 202401
  3. ASPIRIN [Concomitant]
     Active Substance: ASPIRIN

REACTIONS (8)
  - Infection susceptibility increased [Recovering/Resolving]
  - Chronic sinusitis [Recovering/Resolving]
  - Cough [Recovered/Resolved]
  - Eye disorder [Not Recovered/Not Resolved]
  - Arthralgia [Not Recovered/Not Resolved]
  - Breast cancer [Not Recovered/Not Resolved]
  - Hypertension [Recovered/Resolved]
  - Diarrhoea [Recovered/Resolved]

NARRATIVE: CASE EVENT DATE: 20221206
